FAERS Safety Report 4714243-0 (Version None)
Quarter: 2005Q3

REPORT INFORMATION
  Report Type: 
  Country: None (occurrence: None)
  Receive Date: 20050714
  Receipt Date: 20050615
  Transmission Date: 20060218
  Serious: Yes (Hospitalization)
  Sender: FDA-Public Use
  Company Number: AT-JNJFOC-20050604232

PATIENT
  Sex: Male
  Weight: 83 kg

DRUGS (4)
  1. INFLIXIMAB [Suspect]
     Indication: RHEUMATOID ARTHRITIS
     Route: 042
  2. METHOTREXATE [Concomitant]
     Indication: RHEUMATOID ARTHRITIS
     Route: 065
  3. APREDNISLON [Concomitant]
     Route: 065
  4. MOVALIS [Concomitant]
     Route: 065

REACTIONS (1)
  - HYPOCHROMIC ANAEMIA [None]
